FAERS Safety Report 25374377 (Version 1)
Quarter: 2025Q2

REPORT INFORMATION
  Report Type: Spontaneous
  Country: US (occurrence: None)
  Receive Date: 20250528
  Receipt Date: 20250528
  Transmission Date: 20250716
  Serious: Yes (Other)
  Sender: FDA-CTU
  Company Number: None

PATIENT
  Age: 39 Year
  Sex: Female
  Weight: 83.9 kg

DRUGS (1)
  1. MODAFINIL [Suspect]
     Active Substance: MODAFINIL
     Indication: Narcolepsy
     Dosage: FREQUENCY : DAILY;?
     Route: 048
     Dates: start: 202501, end: 20250129

REACTIONS (2)
  - Urticaria [None]
  - Drug ineffective [None]

NARRATIVE: CASE EVENT DATE: 20250124
